FAERS Safety Report 23320021 (Version 1)
Quarter: 2023Q4

REPORT INFORMATION
  Report Type: Spontaneous
  Country: US (occurrence: US)
  Receive Date: 20231220
  Receipt Date: 20231220
  Transmission Date: 20240109
  Serious: Yes (Other)
  Sender: FDA-Public Use
  Company Number: US-ADVANZ PHARMA-202312011454

PATIENT

DRUGS (3)
  1. DIGOXIN [Suspect]
     Active Substance: DIGOXIN
     Indication: Tachycardia foetal
     Dosage: UNK (WITHDRAWN)
     Route: 048
  2. DIGOXIN [Suspect]
     Active Substance: DIGOXIN
     Dosage: UNK (DRUG REINTRODUCED)
     Route: 048
  3. AMIODARONE [Suspect]
     Active Substance: AMIODARONE
     Indication: Tachycardia foetal
     Dosage: UNK
     Route: 048

REACTIONS (10)
  - Hypokalaemia [Unknown]
  - Hypomagnesaemia [Unknown]
  - Disease progression [Unknown]
  - Nausea [Unknown]
  - Decreased appetite [Unknown]
  - Vomiting [Unknown]
  - Abdominal pain [Unknown]
  - Drug intolerance [Unknown]
  - Drug ineffective [Unknown]
  - Exposure during pregnancy [Unknown]
